FAERS Safety Report 16995594 (Version 6)
Quarter: 2021Q4

REPORT INFORMATION
  Report Type: Spontaneous
  Country: US (occurrence: US)
  Receive Date: 20191105
  Receipt Date: 20211202
  Transmission Date: 20220303
  Serious: Yes (Hospitalization, Other)
  Sender: FDA-Public Use
  Company Number: US-PFIZER INC-2019267398

PATIENT
  Age: 69 Year
  Sex: Female

DRUGS (1)
  1. LYRICA [Suspect]
     Active Substance: PREGABALIN
     Dosage: 300 MG, 1X/DAY, 1 CAPSULE AT BEDTIME
     Route: 048

REACTIONS (4)
  - Myocardial infarction [Unknown]
  - Movement disorder [Unknown]
  - Anxiety [Unknown]
  - Spondylitis [Unknown]
